FAERS Safety Report 8499527-5 (Version None)
Quarter: 2012Q3

REPORT INFORMATION
  Report Type: 
  Country: None (occurrence: None)
  Receive Date: 20120710
  Receipt Date: 20120706
  Transmission Date: 20120928
  Serious: Yes (Other)
  Sender: FDA-Public Use
  Company Number: ES-JNJFOC-20090905945

PATIENT
  Age: 76 Year
  Sex: Male
  Weight: 98 kg

DRUGS (14)
  1. REMICADE [Suspect]
     Route: 042
     Dates: start: 20071201
  2. SPIRIVA [Concomitant]
     Indication: ASTHMA
  3. AZATHIOPRINE [Concomitant]
     Dates: start: 20070822, end: 20071003
  4. REMICADE [Suspect]
     Route: 042
     Dates: start: 20090402
  5. REMICADE [Suspect]
     Route: 042
     Dates: start: 20090723
  6. PENTASA [Concomitant]
     Indication: CROHN'S DISEASE
     Dates: start: 20060101, end: 20070109
  7. PREDNISONE TAB [Concomitant]
     Indication: CROHN'S DISEASE
     Dosage: DECREASING 10MG/WEEK
     Dates: start: 20070717
  8. REMICADE [Suspect]
     Indication: CROHN'S DISEASE
     Route: 042
     Dates: start: 20071201
  9. REMICADE [Suspect]
     Route: 042
     Dates: start: 20090528
  10. REMICADE [Suspect]
     Route: 042
     Dates: start: 20090212
  11. ASPIRIN [Concomitant]
     Indication: CARDIAC DISORDER
  12. AZATHIOPRINE [Concomitant]
     Indication: CROHN'S DISEASE
     Dates: start: 20071003, end: 20090314
  13. SYMBICORT [Concomitant]
     Indication: ASTHMA
  14. UROLOSIN [Concomitant]
     Indication: BENIGN PROSTATIC HYPERPLASIA

REACTIONS (2)
  - PROSTATE CANCER RECURRENT [None]
  - PROSTATE CANCER [None]
